FAERS Safety Report 12909089 (Version 1)
Quarter: 2016Q4

REPORT INFORMATION
  Report Type: Spontaneous
  Country: US (occurrence: US)
  Receive Date: 20161103
  Receipt Date: 20161103
  Transmission Date: 20170207
  Serious: No
  Sender: FDA-Public Use
  Company Number: US-JAZZ-2016-US-016989

PATIENT
  Sex: Female

DRUGS (19)
  1. XYREM [Suspect]
     Active Substance: SODIUM OXYBATE
     Dosage: 3 G, BID
     Route: 048
     Dates: start: 201404
  2. GABAPENTIN. [Concomitant]
     Active Substance: GABAPENTIN
  3. CELEBREX [Concomitant]
     Active Substance: CELECOXIB
  4. PROBIOTIC [Concomitant]
     Active Substance: PROBIOTICS NOS
  5. ALLOPURINOL. [Concomitant]
     Active Substance: ALLOPURINOL
  6. FUROSEMIDE. [Concomitant]
     Active Substance: FUROSEMIDE
  7. CYMBALTA [Concomitant]
     Active Substance: DULOXETINE HYDROCHLORIDE
  8. PRAMIPEXOLE. [Concomitant]
     Active Substance: PRAMIPEXOLE
  9. TRAMADOL HCL [Concomitant]
     Active Substance: TRAMADOL HYDROCHLORIDE
  10. LEVOTHYROXINE. [Concomitant]
     Active Substance: LEVOTHYROXINE
  11. MEROPENEM. [Concomitant]
     Active Substance: MEROPENEM
  12. LANTUS [Concomitant]
     Active Substance: INSULIN GLARGINE
  13. RANITIDINE. [Concomitant]
     Active Substance: RANITIDINE
  14. XYREM [Suspect]
     Active Substance: SODIUM OXYBATE
     Indication: HYPERSOMNIA
     Dosage: 2.25 G, BID
     Route: 048
     Dates: start: 201401, end: 201404
  15. APIDRA [Concomitant]
     Active Substance: INSULIN GLULISINE
  16. ASPIRIN. [Concomitant]
     Active Substance: ASPIRIN
  17. ALBUTEROL HFA [Concomitant]
     Active Substance: ALBUTEROL SULFATE
  18. RAMIPRIL. [Concomitant]
     Active Substance: RAMIPRIL
  19. HYDROMORPHONE [Concomitant]
     Active Substance: HYDROMORPHONE

REACTIONS (1)
  - Toothache [Unknown]

NARRATIVE: CASE EVENT DATE: 2016
